FAERS Safety Report 4798494-5 (Version None)
Quarter: 2005Q4

REPORT INFORMATION
  Report Type: 
  Country: None (occurrence: None)
  Receive Date: 20051014
  Receipt Date: 20051003
  Transmission Date: 20060501
  Serious: Yes (Hospitalization, Other)
  Sender: FDA-Public Use
  Company Number: US-MERCK-0510USA02500

PATIENT
  Age: 65 Year
  Sex: Female
  Weight: 91 kg

DRUGS (4)
  1. VIOXX [Suspect]
     Indication: ARTHRITIS
     Route: 048
     Dates: end: 20040930
  2. VIOXX [Suspect]
     Route: 048
     Dates: end: 20040930
  3. VIOXX [Suspect]
     Indication: FIBROMYALGIA
     Route: 048
     Dates: end: 20040930
  4. VIOXX [Suspect]
     Route: 048
     Dates: end: 20040930

REACTIONS (3)
  - CARDIAC DISORDER [None]
  - HEADACHE [None]
  - MYOCARDIAL INFARCTION [None]
